FAERS Safety Report 26000090 (Version 2)
Quarter: 2025Q4

REPORT INFORMATION
  Report Type: Spontaneous
  Country: AU (occurrence: AU)
  Receive Date: 20251105
  Receipt Date: 20251114
  Transmission Date: 20260118
  Serious: Yes (Hospitalization, Other)
  Sender: RANBAXY
  Company Number: AU-SUN PHARMACEUTICAL INDUSTRIES INC-2025R1-534635

PATIENT
  Age: 38 Year
  Sex: Female

DRUGS (6)
  1. LURASIDONE [Suspect]
     Active Substance: LURASIDONE
     Indication: Insomnia
     Dosage: 40 MILLIGRAM
     Route: 048
  2. QUETIAPINE [Suspect]
     Active Substance: QUETIAPINE
     Indication: Product used for unknown indication
     Dosage: 50 MILLIGRAM
     Route: 065
  3. ATORVASTATIN [Concomitant]
     Active Substance: ATORVASTATIN
     Indication: Product used for unknown indication
     Route: 065
  4. FOLIC ACID [Concomitant]
     Active Substance: FOLIC ACID
     Indication: Product used for unknown indication
     Route: 065
  5. LAMOTRIGINE [Concomitant]
     Active Substance: LAMOTRIGINE
     Indication: Product used for unknown indication
     Route: 065
  6. MAGNESIUM ASPARTATE [Concomitant]
     Active Substance: MAGNESIUM ASPARTATE
     Indication: Product used for unknown indication
     Route: 065

REACTIONS (15)
  - Cardiac dysfunction [Recovered/Resolved]
  - Cardiogenic shock [Recovered/Resolved]
  - Drug interaction [Unknown]
  - Electrocardiogram ST segment depression [Recovered/Resolved]
  - Fatigue [Recovered/Resolved]
  - Hypotension [Recovered/Resolved]
  - Fatigue [Recovered/Resolved]
  - Lung opacity [Recovered/Resolved]
  - Metabolic acidosis [Recovered/Resolved]
  - Off label use [Unknown]
  - Sinus tachycardia [Recovered/Resolved]
  - Overdose [Unknown]
  - Unresponsive to stimuli [Unknown]
  - Sputum purulent [Recovered/Resolved]
  - Tachycardia [Recovered/Resolved]
